FAERS Safety Report 16034632 (Version 1)
Quarter: 2019Q1

REPORT INFORMATION
  Report Type: Spontaneous
  Country: US (occurrence: US)
  Receive Date: 20190206
  Receipt Date: 20190206
  Transmission Date: 20190418
  Serious: Yes (Hospitalization, Disabling, Other)
  Sender: FDA-Public Use
  Company Number: None

PATIENT
  Age: 60 Year
  Sex: Female
  Weight: 68.04 kg

DRUGS (2)
  1. DUPIXENT [Suspect]
     Active Substance: DUPILUMAB
     Indication: DERMATITIS ATOPIC
     Dosage: ?          OTHER FREQUENCY:Q 14 DAYS ;?
     Route: 058
  2. LOSARTAN. [Suspect]
     Active Substance: LOSARTAN

REACTIONS (1)
  - Retinal artery occlusion [None]

NARRATIVE: CASE EVENT DATE: 20181214
